FAERS Safety Report 13860038 (Version 1)
Quarter: 2017Q3

REPORT INFORMATION
  Report Type: Spontaneous
  Country: CA (occurrence: CA)
  Receive Date: 20170811
  Receipt Date: 20170811
  Transmission Date: 20171127
  Serious: Yes (Life-Threatening, Other)
  Sender: FDA-Public Use
  Company Number: CA-B.I. PHARMACEUTICALS,INC./RIDGEFIELD-2017-BI-044585

PATIENT
  Age: 75 Year
  Sex: Male
  Weight: 81.19 kg

DRUGS (1)
  1. PRADAX [Suspect]
     Active Substance: DABIGATRAN ETEXILATE MESYLATE
     Indication: ANTICOAGULANT THERAPY
     Route: 048

REACTIONS (9)
  - Decreased appetite [Recovering/Resolving]
  - Disorientation [Recovering/Resolving]
  - Dyspnoea [Recovering/Resolving]
  - Nausea [Recovering/Resolving]
  - Diarrhoea [Recovering/Resolving]
  - Abdominal pain upper [Recovering/Resolving]
  - Asthenia [Recovering/Resolving]
  - Oedema peripheral [Recovering/Resolving]
  - Pain [Recovering/Resolving]
